FAERS Safety Report 6679171-2 (Version None)
Quarter: 2010Q2

REPORT INFORMATION
  Report Type: 
  Country: None (occurrence: None)
  Receive Date: 20100402
  Receipt Date: 20100114
  Transmission Date: 20101027
  Serious: Yes (Hospitalization)
  Sender: FDA-Public Use
  Company Number: 2010005554

PATIENT
  Age: 72 Year
  Sex: Female

DRUGS (10)
  1. ARGATROBAN [Suspect]
     Indication: HEPARIN-INDUCED THROMBOCYTOPENIA
     Dosage: 11.5 UG/KG/MIN, INTRAVENOUS
     Route: 042
  2. LASIX [Concomitant]
  3. LISINOPRIL [Concomitant]
  4. LOPRESSOR [Concomitant]
  5. PROTONIX [Concomitant]
  6. POTASSIUM (POTASSIUM) [Concomitant]
  7. PREDNISONE TAB [Concomitant]
  8. CRESTOR [Concomitant]
  9. WARFARIN SODIUM [Concomitant]
  10. ALBUTEROL [Concomitant]

REACTIONS (1)
  - THERAPEUTIC RESPONSE DECREASED [None]
